FAERS Safety Report 4863295-6 (Version None)
Quarter: 2005Q4

REPORT INFORMATION
  Report Type: 
  Country: None (occurrence: None)
  Receive Date: 20051222
  Receipt Date: 20051213
  Transmission Date: 20060501
  Serious: Yes (Hospitalization)
  Sender: FDA-Public Use
  Company Number: US-BOEHRINGER INGELHEIM PHARMACEUTICALS, INC.-2005-BP-21375BP

PATIENT
  Sex: Female

DRUGS (6)
  1. MOBIC [Suspect]
     Indication: SCIATICA
     Route: 048
     Dates: start: 20051123, end: 20051130
  2. COUMADIN [Suspect]
     Indication: ATRIAL FIBRILLATION
  3. CARDIA [Concomitant]
     Indication: HYPERTENSION
  4. SYNTHROID [Concomitant]
     Indication: THYROID DISORDER
  5. DIGOXIN [Concomitant]
     Indication: ATRIAL FIBRILLATION
  6. LASIX [Concomitant]

REACTIONS (4)
  - HAEMATOCHEZIA [None]
  - OEDEMA [None]
  - SWELLING [None]
  - ULCER HAEMORRHAGE [None]
